FAERS Safety Report 5192476-X (Version None)
Quarter: 2006Q4

REPORT INFORMATION
  Report Type: 
  Country: None (occurrence: None)
  Receive Date: 20061220
  Receipt Date: 20061205
  Transmission Date: 20070319
  Serious: Yes (Other)
  Sender: FDA-Public Use
  Company Number: 2006AL003793

PATIENT
  Age: 21 Year
  Sex: Male

DRUGS (4)
  1. DEXAMETHASONE [Suspect]
     Indication: FACE OEDEMA
     Dosage: 16 MG; PO
     Route: 048
  2. CHEMOTHERAPY [Concomitant]
  3. PREDNISOLONE [Concomitant]
  4. GLYCYRRHIZIN [Concomitant]

REACTIONS (3)
  - BLOOD INSULIN INCREASED [None]
  - BLOOD TRIGLYCERIDES INCREASED [None]
  - HEPATIC STEATOSIS [None]
